FAERS Safety Report 24457865 (Version 2)
Quarter: 2024Q4

REPORT INFORMATION
  Report Type: Report from Study
  Country: US (occurrence: US)
  Receive Date: 20241018
  Receipt Date: 20241115
  Transmission Date: 20250115
  Serious: Yes (Death, Other)
  Sender: GILEAD
  Company Number: US-GILEAD-2024-0691278

PATIENT
  Age: 63 Year
  Sex: Male
  Weight: 58.05 kg

DRUGS (2)
  1. SOFOSBUVIR\VELPATASVIR [Suspect]
     Active Substance: SOFOSBUVIR\VELPATASVIR
     Indication: Hepatitis C
     Dosage: 400MG/100MG TAKE 1 TABLET BY MOUTH ONCE DAILY WITH FOOD
     Route: 048
     Dates: start: 20240923
  2. INVEGA SUSTENNA [Concomitant]
     Active Substance: PALIPERIDONE PALMITATE
     Dosage: 150 MG

REACTIONS (5)
  - Myocardial infarction [Fatal]
  - Iron overload [Fatal]
  - Hepatitis C [Fatal]
  - Hepatic cirrhosis [Fatal]
  - Schizophrenia [Fatal]
